FAERS Safety Report 8886012 (Version 2)
Quarter: 2013Q1

REPORT INFORMATION
  Report Type: Spontaneous
  Country: US (occurrence: US)
  Receive Date: 20121105
  Receipt Date: 20130109
  Transmission Date: 20140127
  Serious: Yes (Other)
  Sender: FDA-Public Use
  Company Number: US-PFIZER INC-2012274898

PATIENT
  Age: 47 Year
  Sex: Female
  Weight: 60.77 kg

DRUGS (15)
  1. LYRICA [Suspect]
     Indication: NEUROPATHY PERIPHERAL
     Dosage: 75 MG, 1X/DAY
     Route: 048
     Dates: start: 2007
  2. VICODIN [Concomitant]
     Dosage: UNK
  3. NORCO [Concomitant]
     Dosage: [HYDROCODONE 5MG]/[ ACETAMINOPHEN325MG]
  4. ASPIRIN [Concomitant]
     Dosage: 81 MG, UNK
  5. SPIRONOLACTONE [Concomitant]
     Dosage: 25 MG, UNK
  6. POTASSIUM [Concomitant]
     Dosage: 20 MG, UNK
  7. SINGULAIR [Concomitant]
     Dosage: 10 MG, UNK
  8. SYNTHROID [Concomitant]
     Indication: HYPOTHYROIDISM
     Dosage: 75 UG, UNK
  9. ALBUTEROL [Concomitant]
     Dosage: UNK
  10. TOPROL XL [Concomitant]
     Dosage: 12.5 MG, UNK
  11. LOPID [Concomitant]
     Dosage: 600 MG, UNK
  12. LASIX [Concomitant]
     Dosage: 40 MG, UNK
  13. VALIUM [Concomitant]
     Indication: PAIN
     Dosage: 5 MG, UNK
  14. ZITHROMAX [Concomitant]
     Dosage: UNK
  15. CELEXA [Concomitant]
     Dosage: 20 MG, UNK

REACTIONS (2)
  - Cardiac disorder [Unknown]
  - Mitral valve disease [Unknown]
